FAERS Safety Report 7941623-2 (Version None)
Quarter: 2011Q4

REPORT INFORMATION
  Report Type: 
  Country: None (occurrence: None)
  Receive Date: 20111128
  Receipt Date: 20110927
  Transmission Date: 20120403
  Serious: No
  Sender: FDA-Public Use
  Company Number: US-BAYER-2011-093674

PATIENT
  Age: 81 Year
  Sex: Female
  Weight: 67 kg

DRUGS (5)
  1. ALEVE (CAPLET) [Suspect]
     Dosage: 1 DF, BID
     Route: 048
     Dates: start: 20010101
  2. PREMARIN [Concomitant]
  3. SYNTHROID [Concomitant]
  4. TRIAMTERENE [Concomitant]
  5. PREVACID [Concomitant]
     Dosage: UNK

REACTIONS (2)
  - BLOOD PRESSURE INCREASED [None]
  - ABDOMINAL PAIN UPPER [None]
